FAERS Safety Report 21777725 (Version 4)
Quarter: 2023Q1

REPORT INFORMATION
  Report Type: Spontaneous
  Country: CA (occurrence: CA)
  Receive Date: 20221226
  Receipt Date: 20230322
  Transmission Date: 20230418
  Serious: Yes (Hospitalization, Other)
  Sender: FDA-Public Use
  Company Number: CA-CELLTRION INC.-2022CA021636

PATIENT

DRUGS (16)
  1. INFLECTRA [Suspect]
     Active Substance: INFLIXIMAB-DYYB
     Indication: Crohn^s disease
     Dosage: 10 MG/KG, EVERY 4 WEEKS
     Route: 042
     Dates: start: 2017
  2. INFLECTRA [Suspect]
     Active Substance: INFLIXIMAB-DYYB
     Dosage: 10 MG/KG, EVERY 4 WEEKS
     Route: 042
     Dates: start: 20200620
  3. INFLECTRA [Suspect]
     Active Substance: INFLIXIMAB-DYYB
     Dosage: 10 MG/KG, EVERY 4 WEEKS
     Route: 042
     Dates: start: 20220720
  4. INFLECTRA [Suspect]
     Active Substance: INFLIXIMAB-DYYB
     Dosage: 10MG/KG EVERY 4 WEEKS
     Route: 042
     Dates: start: 20230119, end: 20230119
  5. INFLECTRA [Suspect]
     Active Substance: INFLIXIMAB-DYYB
     Dosage: 10 MG/KG EVERY 4 WEEKS
     Route: 042
     Dates: start: 20230119
  6. INFLECTRA [Suspect]
     Active Substance: INFLIXIMAB-DYYB
     Dosage: 10 MG/KG, EVERY 4 WEEKS
     Route: 042
     Dates: start: 20230214
  7. INFLECTRA [Suspect]
     Active Substance: INFLIXIMAB-DYYB
     Dosage: 580 MG (10 MG/KG) EVERY 4 WEEKS
     Route: 042
     Dates: start: 20230314
  8. INFLECTRA [Suspect]
     Active Substance: INFLIXIMAB-DYYB
     Dosage: 580 MG (10 MG/KG) EVERY 4 WEEKS
     Route: 042
     Dates: start: 20230314
  9. AZATHIOPRINE [Concomitant]
     Active Substance: AZATHIOPRINE
     Indication: Inflammatory bowel disease
     Dosage: 100 MG
     Dates: start: 20210419
  10. AZATHIOPRINE [Concomitant]
     Active Substance: AZATHIOPRINE
     Dosage: 100 MG
     Dates: start: 20220710
  11. THIAMINE HYDROCHLORIDE [Concomitant]
     Active Substance: THIAMINE HYDROCHLORIDE
     Dosage: UNK
  12. COVID-19 vaccine [Concomitant]
     Indication: COVID-19 immunisation
     Dosage: DOSE 1, SINGLE
  13. COVID-19 vaccine [Concomitant]
     Dosage: DOSE 2, SINGLE
  14. COVID-19 vaccine [Concomitant]
     Dosage: DOSE 3, SINGLE
     Dates: start: 20211230, end: 20211230
  15. INFLIXIMAB [Concomitant]
     Active Substance: INFLIXIMAB
     Dosage: EVERY 4 WEEKS
  16. VIT D [VITAMIN D NOS] [Concomitant]
     Dosage: UNK

REACTIONS (20)
  - Fistula [Not Recovered/Not Resolved]
  - Condition aggravated [Not Recovered/Not Resolved]
  - Haemorrhage [Unknown]
  - Abscess [Unknown]
  - Drug ineffective [Unknown]
  - Pneumonia [Unknown]
  - Vein rupture [Recovered/Resolved]
  - Off label use [Unknown]
  - Off label use [Unknown]
  - Intentional product use issue [Unknown]
  - COVID-19 [Unknown]
  - Fatigue [Unknown]
  - Eczema [Unknown]
  - Abdominal pain [Unknown]
  - Seborrhoeic dermatitis [Unknown]
  - Alopecia [Unknown]
  - Arthralgia [Not Recovered/Not Resolved]
  - Pharyngeal erythema [Recovered/Resolved]
  - Vascular fragility [Recovered/Resolved]
  - Poor venous access [Recovered/Resolved]

NARRATIVE: CASE EVENT DATE: 20170101
